FAERS Safety Report 5210682-2 (Version None)
Quarter: 2007Q1

REPORT INFORMATION
  Report Type: 
  Country: None (occurrence: None)
  Receive Date: 20070117
  Receipt Date: 20070115
  Transmission Date: 20070707
  Serious: Yes (Disabling)
  Sender: FDA-Public Use
  Company Number: JP-JPN-A200605270

PATIENT
  Age: 89 Year
  Sex: Female
  Weight: 35 kg

DRUGS (2)
  1. ZOVIRAX [Suspect]
     Indication: HERPES ZOSTER
     Dosage: 200MG PER DAY
     Route: 042
     Dates: start: 20061201, end: 20061202
  2. HEMODIALYSIS [Concomitant]

REACTIONS (4)
  - COMA [None]
  - DEPRESSED LEVEL OF CONSCIOUSNESS [None]
  - ENCEPHALITIS HERPES [None]
  - MENINGITIS [None]
